FAERS Safety Report 7298955-3 (Version None)
Quarter: 2011Q1

REPORT INFORMATION
  Report Type: 
  Country: None (occurrence: None)
  Receive Date: 20110217
  Receipt Date: 20110214
  Transmission Date: 20110831
  Serious: Yes (Other)
  Sender: FDA-Public Use
  Company Number: CA-PFIZER INC-2011032592

PATIENT
  Age: 67 Year
  Sex: Male

DRUGS (3)
  1. NORVASC [Suspect]
     Dosage: 10 MG, UNK
     Dates: start: 20090101
  2. DIOVAN [Concomitant]
     Dosage: 160 MG, UNK
     Dates: start: 20090101
  3. NEXIUM [Concomitant]
     Dosage: 40 MG, UNK

REACTIONS (2)
  - EYE DISORDER [None]
  - RETINAL DEGENERATION [None]
